FAERS Safety Report 23029825 (Version 1)
Quarter: 2023Q4

REPORT INFORMATION
  Report Type: Spontaneous
  Country: CN (occurrence: CN)
  Receive Date: 20231004
  Receipt Date: 20231004
  Transmission Date: 20240109
  Serious: Yes (Hospitalization, Other)
  Sender: FDA-Public Use
  Company Number: CN-TAKEDA-2023TUS094715

PATIENT
  Age: 72 Year
  Sex: Female

DRUGS (10)
  1. ADCETRIS [Suspect]
     Active Substance: BRENTUXIMAB VEDOTIN
     Indication: Neoplasm malignant
     Dosage: 50 MILLIGRAM
     Route: 041
     Dates: start: 20230403
  2. ADCETRIS [Suspect]
     Active Substance: BRENTUXIMAB VEDOTIN
     Dosage: 50 MILLIGRAM, QD
     Route: 041
     Dates: start: 20230912, end: 20230912
  3. GEMCITABINE HYDROCHLORIDE [Suspect]
     Active Substance: GEMCITABINE HYDROCHLORIDE
     Indication: Neoplasm malignant
     Dosage: 120 MILLIGRAM
     Route: 041
     Dates: start: 20230403
  4. GEMCITABINE HYDROCHLORIDE [Suspect]
     Active Substance: GEMCITABINE HYDROCHLORIDE
     Dosage: 120 MILLIGRAM, QD
     Route: 041
     Dates: start: 20230913, end: 20230913
  5. CISPLATIN [Suspect]
     Active Substance: CISPLATIN
     Indication: Neoplasm malignant
     Dosage: 30 MILLIGRAM
     Route: 041
     Dates: start: 20230403
  6. CISPLATIN [Suspect]
     Active Substance: CISPLATIN
     Dosage: 30 MILLIGRAM, QD
     Route: 041
     Dates: start: 20230913, end: 20230915
  7. SODIUM CHLORIDE [Concomitant]
     Active Substance: SODIUM CHLORIDE
     Dosage: 100 MILLILITER, QD
     Route: 041
     Dates: start: 20230912, end: 20230912
  8. SODIUM CHLORIDE [Concomitant]
     Active Substance: SODIUM CHLORIDE
     Dosage: 100 MILLILITER, QD
     Route: 041
     Dates: start: 20230913, end: 20230913
  9. SODIUM CHLORIDE [Concomitant]
     Active Substance: SODIUM CHLORIDE
     Dosage: 500 MILLILITER, QD
     Route: 041
     Dates: start: 20230913, end: 20230915
  10. SODIUM CHLORIDE [Concomitant]
     Active Substance: SODIUM CHLORIDE
     Dosage: 100 MILLILITER, QD
     Route: 041
     Dates: start: 20230920, end: 20230920

REACTIONS (1)
  - Myelosuppression [Unknown]

NARRATIVE: CASE EVENT DATE: 20230921
